FAERS Safety Report 21568406 (Version 1)
Quarter: 2022Q4

REPORT INFORMATION
  Report Type: Spontaneous
  Country: FI (occurrence: FI)
  Receive Date: 20221108
  Receipt Date: 20221108
  Transmission Date: 20230112
  Serious: Yes (Disabling)
  Sender: FDA-Public Use
  Company Number: None

PATIENT
  Age: 31 Year
  Sex: Female

DRUGS (1)
  1. MIRENA [Suspect]
     Active Substance: LEVONORGESTREL
     Indication: Contraception
     Dosage: 20?G/DAY
     Route: 015
     Dates: start: 2014, end: 2021

REACTIONS (4)
  - Ectopic pregnancy with contraceptive device [Recovered/Resolved with Sequelae]
  - Hypomenorrhoea [Recovered/Resolved with Sequelae]
  - Salpingectomy [Recovered/Resolved with Sequelae]
  - Endometrial hypoplasia [Recovered/Resolved with Sequelae]

NARRATIVE: CASE EVENT DATE: 20210101
